FAERS Safety Report 20952885 (Version 7)
Quarter: 2024Q1

REPORT INFORMATION
  Report Type: Report from Study
  Country: JP (occurrence: JP)
  Receive Date: 20220613
  Receipt Date: 20240118
  Transmission Date: 20240410
  Serious: Yes (Hospitalization)
  Sender: FDA-Public Use
  Company Number: JP-SA-2022SA215172

PATIENT
  Age: 67 Year
  Sex: Male
  Weight: 71 kg

DRUGS (21)
  1. SARILUMAB [Suspect]
     Active Substance: SARILUMAB
     Indication: Rheumatoid arthritis
     Dosage: UNK UNK, QOW
     Route: 058
     Dates: start: 20220215
  2. CELECOXIB [Concomitant]
     Active Substance: CELECOXIB
     Indication: Rheumatoid arthritis
     Dosage: 100 MG, BID (AFTER BREAKFAST AND AFTER EVENING MEAL)
     Route: 048
     Dates: start: 20220330
  3. CELECOXIB [Concomitant]
     Active Substance: CELECOXIB
     Dosage: 400 MG, BID
     Route: 048
     Dates: start: 20211001, end: 20220329
  4. ALDIOXA [Concomitant]
     Active Substance: ALDIOXA
     Indication: Gastrointestinal mucosal disorder
     Dosage: 100 MG, BID (AFTER BREAKFAST AND AFTER EVENING MEAL)
     Route: 048
     Dates: start: 20211001
  5. FELBINAC [Concomitant]
     Active Substance: FELBINAC
     Indication: Rheumatoid arthritis
     Dosage: UNK UNK, QD (1 OR 2 SHEETS)
     Route: 061
     Dates: start: 20211001
  6. ISCOTIN [Concomitant]
     Active Substance: ISONIAZID
     Indication: Antibiotic prophylaxis
     Dosage: 300 MG, QD (AFTER BREAKFAST)
     Route: 048
     Dates: start: 20211001
  7. ISCOTIN [Concomitant]
     Active Substance: ISONIAZID
     Indication: Interstitial lung disease
  8. PLAVIX [Concomitant]
     Active Substance: CLOPIDOGREL BISULFATE
     Indication: Cerebrovascular accident prophylaxis
     Dosage: 75 MG, QD
     Route: 048
     Dates: start: 202012
  9. FAMOTIDINE [Concomitant]
     Active Substance: FAMOTIDINE
     Indication: Prophylaxis against gastrointestinal ulcer
     Dosage: 10 MG, QD (AFTER BREAKFAST)
     Route: 048
     Dates: start: 202012
  10. AMLODIPINE BESYLATE\TELMISARTAN [Concomitant]
     Active Substance: AMLODIPINE BESYLATE\TELMISARTAN
     Indication: Hypertension
     Dosage: 1 DF, QD (AFTER BREAKFAST)
     Route: 048
     Dates: start: 202012
  11. ROSUVASTATIN CALCIUM [Concomitant]
     Active Substance: ROSUVASTATIN CALCIUM
     Indication: Cerebrovascular accident prophylaxis
     Dosage: 2.5 MG, QD (AFTER BREAKFAST)
     Route: 048
     Dates: start: 202012
  12. PREDNISOLONE [Concomitant]
     Active Substance: PREDNISOLONE
     Indication: Interstitial lung disease
     Dosage: 8 MG, QD (AFTER BREAKFAST)
     Route: 048
     Dates: start: 20220128
  13. PREDNISOLONE [Concomitant]
     Active Substance: PREDNISOLONE
     Dosage: 6 MG, QD (AFTER BREAKFAST)
     Route: 048
     Dates: start: 20220917
  14. VILDAGLIPTIN [Concomitant]
     Active Substance: VILDAGLIPTIN
     Indication: Type 2 diabetes mellitus
     Dosage: 50 MG, BID (AFTER BREAKFAST AND AFTER EVENING MEAL)
     Route: 048
  15. MITIGLINIDE CALCIUM ANHYDROUS [Concomitant]
     Active Substance: MITIGLINIDE CALCIUM ANHYDROUS
     Indication: Type 2 diabetes mellitus
     Dosage: 5 MG, TID (IMMEDIATELY BEFORE EACH MEAL)
     Route: 048
  16. ALFAROL [Concomitant]
     Active Substance: ALFACALCIDOL
     Indication: Osteoporosis prophylaxis
     Dosage: 1 UG, QD (AFTER BREAKFAST)
     Route: 048
  17. ALENDRONATE [Concomitant]
     Active Substance: ALENDRONATE SODIUM
     Indication: Osteoporosis prophylaxis
     Dosage: 1 DF, QW (AT RISING)
     Route: 048
  18. ROSUVASTATIN CALCIUM [Concomitant]
     Active Substance: ROSUVASTATIN CALCIUM
     Indication: Cerebrovascular accident prophylaxis
     Dosage: 2.5 MG, QD
     Route: 048
     Dates: start: 202012
  19. METFORMIN HYDROCHLORIDE\VILDAGLIPTIN [Concomitant]
     Active Substance: METFORMIN HYDROCHLORIDE\VILDAGLIPTIN
     Indication: Type 2 diabetes mellitus
     Dosage: 2 DF, BID (AFTER BREAKFAST AND AFTER EVENING MEAL)
     Route: 048
  20. NILVADIPINE [Concomitant]
     Active Substance: NILVADIPINE
     Indication: Type 2 diabetes mellitus
     Dosage: 4 MG, BID (AFTER BREAKFAST AND AFTER EVENING MEAL)
     Route: 048
  21. SULFAMETHOXAZOLE\TRIMETHOPRIM [Concomitant]
     Active Substance: SULFAMETHOXAZOLE\TRIMETHOPRIM
     Indication: Infection prophylaxis
     Dosage: 1 DF, QD (AFTER BREAKFAST)
     Route: 048

REACTIONS (6)
  - Cerebral infarction [Recovered/Resolved]
  - Dizziness [Recovered/Resolved]
  - Gait disturbance [Recovered/Resolved]
  - Brain stem infarction [Recovered/Resolved]
  - Dizziness [Recovered/Resolved]
  - Haematoma muscle [Not Recovered/Not Resolved]

NARRATIVE: CASE EVENT DATE: 20220301
